FAERS Safety Report 16678245 (Version 3)
Quarter: 2019Q3

REPORT INFORMATION
  Report Type: Spontaneous
  Country: US (occurrence: US)
  Receive Date: 20190807
  Receipt Date: 20190814
  Transmission Date: 20191004
  Serious: No
  Sender: FDA-Public Use
  Company Number: US-PFIZER INC-2019335253

PATIENT
  Age: 59 Year
  Sex: Female
  Weight: 47.61 kg

DRUGS (1)
  1. CHANTIX [Suspect]
     Active Substance: VARENICLINE TARTRATE
     Indication: SMOKING CESSATION THERAPY
     Dosage: 1 MG, 2X/DAY (BLUE PILL 1MG TWICE A DAY)

REACTIONS (10)
  - Menopause [Unknown]
  - Crying [Unknown]
  - Emotional disorder [Unknown]
  - Poor quality sleep [Unknown]
  - Abnormal dreams [Unknown]
  - Insomnia [Unknown]
  - Mood altered [Unknown]
  - Mood swings [Unknown]
  - Withdrawal syndrome [Unknown]
  - Depression [Recovering/Resolving]

NARRATIVE: CASE EVENT DATE: 201907
